FAERS Safety Report 15060050 (Version 1)
Quarter: 2018Q2

REPORT INFORMATION
  Report Type: Spontaneous
  Country: US (occurrence: US)
  Receive Date: 20180605
  Receipt Date: 20180605
  Transmission Date: 20180711
  Serious: Yes (Other)
  Sender: FDA-Public Use
  Company Number: None

PATIENT
  Age: 65 Year
  Sex: Female

DRUGS (6)
  1. LEVOTYROXIL [Concomitant]
  2. BACLOFEN. [Concomitant]
     Active Substance: BACLOFEN
  3. OCRELIZUMAB. [Suspect]
     Active Substance: OCRELIZUMAB
     Indication: PRIMARY PROGRESSIVE MULTIPLE SCLEROSIS
  4. LIPITOR [Concomitant]
     Active Substance: ATORVASTATIN CALCIUM
  5. PROVIGIL [Concomitant]
     Active Substance: MODAFINIL
  6. AMPYRA [Concomitant]
     Active Substance: DALFAMPRIDINE

REACTIONS (5)
  - Oestrogen receptor positive breast cancer [None]
  - Invasive ductal breast carcinoma [None]
  - Progesterone receptor assay positive [None]
  - Paget^s disease of nipple [None]
  - HER-2 positive breast cancer [None]

NARRATIVE: CASE EVENT DATE: 20180220
